FAERS Safety Report 10354792 (Version 7)
Quarter: 2015Q1

REPORT INFORMATION
  Report Type: Spontaneous
  Country: US (occurrence: US)
  Receive Date: 20140731
  Receipt Date: 20150119
  Transmission Date: 20150720
  Serious: Yes (Life-Threatening, Hospitalization, Disabling, Other)
  Sender: FDA-Public Use
  Company Number: US-GLAXOSMITHKLINE-A1083024A

PATIENT
  Age: 40 Year
  Sex: Female
  Weight: 71.8 kg

DRUGS (18)
  1. TRAZODONE [Concomitant]
     Active Substance: TRAZODONE HYDROCHLORIDE
  2. BENLYSTA [Suspect]
     Active Substance: BELIMUMAB
     Indication: SYSTEMIC LUPUS ERYTHEMATOSUS
     Dosage: 10 MG/KG, 850 MG PER MONTH
     Route: 042
     Dates: start: 20140520, end: 201409
  3. BENLYSTA [Suspect]
     Active Substance: BELIMUMAB
     Dosage: 400 MG, U
     Dates: start: 20141106
  4. TRIAMCINOLONE CREAM [Concomitant]
  5. CYANOCOBALAMIN. [Concomitant]
     Active Substance: CYANOCOBALAMIN
  6. SOLU-MEDROL [Concomitant]
     Active Substance: METHYLPREDNISOLONE SODIUM SUCCINATE
  7. TRAZODONE [Concomitant]
     Active Substance: TRAZODONE HYDROCHLORIDE
  8. LEXAPRO [Suspect]
     Active Substance: ESCITALOPRAM OXALATE
     Indication: PRODUCT USED FOR UNKNOWN INDICATION
     Dosage: UNK, U
     Route: 065
     Dates: start: 201402, end: 201407
  9. PLAQUENIL [Concomitant]
     Active Substance: HYDROXYCHLOROQUINE SULFATE
  10. PRENATAL VITAMINS [Concomitant]
     Active Substance: VITAMINS
  11. BENLYSTA [Suspect]
     Active Substance: BELIMUMAB
     Dosage: 150MG,25CC IN 250ML, CYC
     Route: 065
     Dates: start: 20141006
  12. CYMBALTA [Suspect]
     Active Substance: DULOXETINE HYDROCHLORIDE
     Indication: SUICIDAL IDEATION
     Dosage: 60 MG, QD
     Dates: start: 201407, end: 201411
  13. GABAPENTIN. [Concomitant]
     Active Substance: GABAPENTIN
  14. FENTANYL TRANSDERMAL SYSTEM [Concomitant]
     Active Substance: FENTANYL
  15. LORAZEPAM. [Concomitant]
     Active Substance: LORAZEPAM
  16. BENADRYL [Concomitant]
     Active Substance: DIPHENHYDRAMINE HYDROCHLORIDE
  17. LASIX [Concomitant]
     Active Substance: FUROSEMIDE
  18. ONDANSETRON HCL [Concomitant]
     Active Substance: ONDANSETRON HYDROCHLORIDE

REACTIONS (13)
  - Swelling face [Recovering/Resolving]
  - Gait disturbance [Unknown]
  - Suicidal ideation [Recovering/Resolving]
  - Adverse reaction [Unknown]
  - Hospitalisation [Unknown]
  - Mobility decreased [Unknown]
  - Peripheral swelling [Recovering/Resolving]
  - Swelling [Unknown]
  - Ear swelling [Recovering/Resolving]
  - Ear injury [Recovered/Resolved]
  - Otorrhoea [Recovered/Resolved]
  - Drug hypersensitivity [Unknown]
  - Pain [Unknown]

NARRATIVE: CASE EVENT DATE: 201403
